FAERS Safety Report 7069615-9 (Version None)
Quarter: 2010Q4

REPORT INFORMATION
  Report Type: 
  Country: None (occurrence: None)
  Receive Date: 20101028
  Receipt Date: 20100324
  Transmission Date: 20110411
  Serious: No
  Sender: FDA-Public Use
  Company Number: US-WYE-H14299410

PATIENT
  Sex: Male
  Weight: 86.26 kg

DRUGS (8)
  1. EFFEXOR [Suspect]
     Indication: DEPRESSION
     Route: 048
     Dates: start: 20100101
  2. ZOLOFT [Suspect]
     Indication: DEPRESSION
     Route: 048
     Dates: start: 20090101, end: 20100101
  3. ZOLOFT [Suspect]
     Dates: start: 20100101, end: 20100101
  4. FISH OIL, HYDROGENATED [Concomitant]
     Dosage: UNKNOWN
     Dates: start: 20090101
  5. LIPITOR [Concomitant]
     Indication: BLOOD CHOLESTEROL INCREASED
     Dates: start: 20060101
  6. ACETYLSALICYLIC ACID [Concomitant]
     Dates: start: 20090101
  7. LEXAPRO [Suspect]
     Indication: DEPRESSION
  8. GEMFIBROZIL [Concomitant]
     Indication: BLOOD TRIGLYCERIDES INCREASED
     Route: 048

REACTIONS (2)
  - DRUG INEFFECTIVE [None]
  - TREMOR [None]
